FAERS Safety Report 12834387 (Version 3)
Quarter: 2016Q4

REPORT INFORMATION
  Report Type: Spontaneous
  Country: US (occurrence: US)
  Receive Date: 20161010
  Receipt Date: 20161114
  Transmission Date: 20170207
  Serious: No
  Sender: FDA-Public Use
  Company Number: US-ASTRAZENECA-2016SF06554

PATIENT
  Sex: Male
  Weight: 85.7 kg

DRUGS (7)
  1. BRILINTA [Suspect]
     Active Substance: TICAGRELOR
     Indication: ACUTE CORONARY SYNDROME
     Route: 048
     Dates: start: 20160410
  2. BRILINTA [Suspect]
     Active Substance: TICAGRELOR
     Indication: STENT PLACEMENT
     Route: 048
     Dates: start: 20160410
  3. LISINOPRIL. [Suspect]
     Active Substance: LISINOPRIL
     Indication: BLOOD PRESSURE MEASUREMENT
     Route: 048
     Dates: start: 20160410
  4. CLAREVASA [Concomitant]
     Indication: CARDIOVASCULAR DISORDER
  5. CLAREVASA [Concomitant]
     Indication: SUPPLEMENTATION THERAPY
  6. FISH OIL [Concomitant]
     Active Substance: FISH OIL
  7. COQ12 [Concomitant]

REACTIONS (4)
  - Laceration [Unknown]
  - Coagulopathy [Unknown]
  - Contusion [Unknown]
  - Haemorrhage [Unknown]
